FAERS Safety Report 6233327-1 (Version None)
Quarter: 2009Q2

REPORT INFORMATION
  Report Type: 
  Country: None (occurrence: None)
  Receive Date: 20090616
  Receipt Date: 20090616
  Transmission Date: 20091009
  Serious: No
  Sender: FDA-Public Use
  Company Number: None

PATIENT
  Age: 85 Year
  Sex: Male
  Weight: 59.09 kg

DRUGS (2)
  1. OLANZAPINE [Suspect]
     Dosage: 5 MG EVERY DAY PO
     Route: 048
     Dates: start: 20090123, end: 20090324
  2. CITALOPRAM [Suspect]
     Dates: start: 20090123, end: 20090324

REACTIONS (2)
  - AGITATION [None]
  - DISORIENTATION [None]
